FAERS Safety Report 10685101 (Version 2)
Quarter: 2015Q1

REPORT INFORMATION
  Report Type: Spontaneous
  Country: US (occurrence: US)
  Receive Date: 20141231
  Receipt Date: 20150303
  Transmission Date: 20150720
  Serious: Yes (Hospitalization)
  Sender: FDA-Public Use
  Company Number: US-INCYTE CORPORATION-2014IN004018

PATIENT
  Age: 68 Year
  Sex: Female

DRUGS (1)
  1. JAKAFI [Suspect]
     Active Substance: RUXOLITINIB
     Dosage: 20 MG, BID
     Route: 048
     Dates: start: 20140503

REACTIONS (4)
  - Pyrexia [Unknown]
  - Rhinorrhoea [Unknown]
  - Cough [Unknown]
  - Acute leukaemia [Unknown]

NARRATIVE: CASE EVENT DATE: 20141221
